FAERS Safety Report 13052251 (Version 1)
Quarter: 2016Q4

REPORT INFORMATION
  Report Type: Spontaneous
  Country: US (occurrence: US)
  Receive Date: 20161221
  Receipt Date: 20161221
  Transmission Date: 20170207
  Serious: Yes (Other)
  Sender: FDA-Public Use
  Company Number: US-PFIZER INC-2016587153

PATIENT
  Age: 54 Year
  Sex: Female
  Weight: 48.99 kg

DRUGS (2)
  1. CHANTIX [Suspect]
     Active Substance: VARENICLINE TARTRATE
     Dosage: UNK
  2. BENADRYL [Suspect]
     Active Substance: DIPHENHYDRAMINE HYDROCHLORIDE
     Indication: URTICARIA
     Dosage: UNK

REACTIONS (5)
  - Swollen tongue [Unknown]
  - Blister [Unknown]
  - Urticaria [Unknown]
  - Tinnitus [Unknown]
  - Drug hypersensitivity [Unknown]
